FAERS Safety Report 5524867-9 (Version None)
Quarter: 2007Q4

REPORT INFORMATION
  Report Type: 
  Country: None (occurrence: None)
  Receive Date: 20071116
  Receipt Date: 20071106
  Transmission Date: 20080405
  Serious: Yes (Hospitalization)
  Sender: FDA-Public Use
  Company Number: 2007AL004786

PATIENT
  Age: 91 Year
  Sex: Female

DRUGS (5)
  1. TRAMADOL HCL [Suspect]
  2. ENOXAPARIN SODIUM [Concomitant]
  3. FRUSEMIDE [Concomitant]
  4. BUMETANIDE [Concomitant]
  5. BENZYDAMINE [Concomitant]

REACTIONS (7)
  - ASTHENIA [None]
  - DEHYDRATION [None]
  - DRY MOUTH [None]
  - HYPERHIDROSIS [None]
  - NAUSEA [None]
  - PERSONALITY DISORDER [None]
  - VOMITING [None]
